FAERS Safety Report 12686972 (Version 2)
Quarter: 2016Q3

REPORT INFORMATION
  Report Type: Spontaneous
  Country: GB (occurrence: GB)
  Receive Date: 20160826
  Receipt Date: 20160906
  Transmission Date: 20161109
  Serious: Yes (Other)
  Sender: FDA-Public Use
  Company Number: GB-SUN PHARMACEUTICAL INDUSTRIES LTD-2016RR-122327

PATIENT
  Sex: Female

DRUGS (8)
  1. ARIMIDEX [Suspect]
     Active Substance: ANASTROZOLE
     Indication: PRODUCT USED FOR UNKNOWN INDICATION
     Dosage: UNK
     Route: 065
  2. ANASTROZOLE. [Suspect]
     Active Substance: ANASTROZOLE
     Dosage: UNK
     Route: 065
  3. ANASTROZOLE. [Suspect]
     Active Substance: ANASTROZOLE
     Dosage: UNK
     Route: 065
  4. ANASTROZOLE. [Suspect]
     Active Substance: ANASTROZOLE
     Indication: PRODUCT USED FOR UNKNOWN INDICATION
     Dosage: UNK
     Route: 065
     Dates: start: 2012, end: 2013
  5. ACCORD HEALTHCARE ANASTROZOLE [Suspect]
     Active Substance: ANASTROZOLE
     Indication: PRODUCT USED FOR UNKNOWN INDICATION
     Dosage: UNK
     Route: 065
     Dates: start: 201305, end: 201305
  6. OMEPRAZOLE. [Concomitant]
     Active Substance: OMEPRAZOLE
     Indication: PRODUCT USED FOR UNKNOWN INDICATION
     Dosage: FEW MONTHS
     Route: 065
     Dates: start: 2012, end: 2013
  7. ANASTROZOLE. [Suspect]
     Active Substance: ANASTROZOLE
     Dosage: UNK
     Route: 065
     Dates: start: 201305, end: 201402
  8. ANASTROZOLE. [Suspect]
     Active Substance: ANASTROZOLE
     Dosage: UNK
     Route: 065

REACTIONS (25)
  - Lip swelling [Unknown]
  - Swollen tongue [Unknown]
  - Paraesthesia oral [Unknown]
  - Menopausal symptoms [Unknown]
  - Overdose [Unknown]
  - Adverse drug reaction [Unknown]
  - Disability [Unknown]
  - Movement disorder [Unknown]
  - Speech disorder [Unknown]
  - Mental disorder [Recovered/Resolved]
  - Drug hypersensitivity [Unknown]
  - Confusional state [Unknown]
  - Muscle disorder [Unknown]
  - Abasia [Unknown]
  - Drug level increased [Unknown]
  - Muscle tightness [Unknown]
  - Anxiety [Unknown]
  - Drug intolerance [Unknown]
  - Withdrawal syndrome [Unknown]
  - Discomfort [Unknown]
  - Stress [Unknown]
  - Hernia [Unknown]
  - Emotional distress [Unknown]
  - Fear [Unknown]
  - Product substitution issue [Unknown]
